FAERS Safety Report 5168732-8 (Version None)
Quarter: 2006Q4

REPORT INFORMATION
  Report Type: 
  Country: None (occurrence: None)
  Receive Date: 20061211
  Receipt Date: 20061130
  Transmission Date: 20070319
  Serious: Yes (Other)
  Sender: FDA-Public Use
  Company Number: PHEH2006US14783

PATIENT
  Age: 41 Year
  Sex: Female

DRUGS (1)
  1. FAMVIR [Suspect]
     Indication: HERPES SIMPLEX
     Dosage: UNK, BID
     Route: 048
     Dates: start: 19960101

REACTIONS (2)
  - ABORTION SPONTANEOUS [None]
  - DRUG INEFFECTIVE [None]
